FAERS Safety Report 5518034-2 (Version None)
Quarter: 2007Q4

REPORT INFORMATION
  Report Type: 
  Country: None (occurrence: None)
  Receive Date: 20071115
  Receipt Date: 20071113
  Transmission Date: 20080405
  Serious: Yes (Other)
  Sender: FDA-Public Use
  Company Number: SE-BRISTOL-MYERS SQUIBB COMPANY-13976386

PATIENT
  Age: 46 Year
  Sex: Male

DRUGS (6)
  1. VIDEX [Suspect]
     Indication: HIV INFECTION
     Dates: start: 20050101
  2. ZIAGEN [Suspect]
     Indication: HIV INFECTION
     Dates: start: 20050101
  3. VIRAMUNE [Suspect]
     Indication: HIV INFECTION
     Dates: start: 20050101
  4. METFORMIN HCL [Concomitant]
     Indication: DIABETES MELLITUS
     Dates: start: 19960101
  5. ATENOLOL [Concomitant]
     Indication: HYPERTENSION
     Dates: start: 19940101
  6. ATENOLOL [Concomitant]
     Indication: CEREBROVASCULAR ACCIDENT
     Dates: start: 19940101

REACTIONS (1)
  - OSTEONECROSIS [None]
